FAERS Safety Report 20523793 (Version 1)
Quarter: 2022Q1

REPORT INFORMATION
  Report Type: Spontaneous
  Country: US (occurrence: US)
  Receive Date: 20220228
  Receipt Date: 20220228
  Transmission Date: 20220423
  Serious: No
  Sender: FDA-Public Use
  Company Number: US-IGSA-BIG0016167

PATIENT
  Age: 52 Year
  Sex: Male
  Weight: 102.9 kg

DRUGS (9)
  1. PROLASTIN-C LIQUID [Suspect]
     Active Substance: .ALPHA.1-PROTEINASE INHIBITOR HUMAN
     Indication: Alpha-1 antitrypsin deficiency
     Dosage: 6174 MILLIGRAM, Q.WK.
     Route: 042
     Dates: start: 20210217, end: 202109
  2. ACLIDINIUM BROMIDE [Concomitant]
     Active Substance: ACLIDINIUM BROMIDE
  3. METOPROLOL [Concomitant]
     Active Substance: METOPROLOL
  4. FLECAINIDE [Concomitant]
     Active Substance: FLECAINIDE
  5. ELIQUIS [Concomitant]
     Active Substance: APIXABAN
  6. ACLIDINIUM BROMIDE\FORMOTEROL FUMARATE [Concomitant]
     Active Substance: ACLIDINIUM BROMIDE\FORMOTEROL FUMARATE
  7. DIOVAN [Concomitant]
     Active Substance: VALSARTAN
  8. DILTIAZEM [Concomitant]
     Active Substance: DILTIAZEM
  9. ALBUTEROL [Concomitant]
     Active Substance: ALBUTEROL

REACTIONS (5)
  - Pruritus [Recovered/Resolved]
  - Tongue pruritus [Recovered/Resolved]
  - Intentional dose omission [Not Recovered/Not Resolved]
  - Urticaria [Recovered/Resolved]
  - Atrial fibrillation [Not Recovered/Not Resolved]

NARRATIVE: CASE EVENT DATE: 20210901
